FAERS Safety Report 12601564 (Version 1)
Quarter: 2016Q3

REPORT INFORMATION
  Report Type: Spontaneous
  Country: CA (occurrence: CA)
  Receive Date: 20160728
  Receipt Date: 20160728
  Transmission Date: 20161109
  Serious: Yes (Death, Hospitalization, Other)
  Sender: FDA-Public Use
  Company Number: CA-JAZZ-2015-CA-022895

PATIENT
  Age: 11 Year
  Sex: Male

DRUGS (5)
  1. ASPARAGINASE [Suspect]
     Active Substance: ASPARAGINASE
     Indication: ACUTE LYMPHOCYTIC LEUKAEMIA
     Dosage: UNK
  2. METHOTREXATE. [Suspect]
     Active Substance: METHOTREXATE
     Indication: ACUTE LYMPHOCYTIC LEUKAEMIA
     Route: 065
  3. PREDNISONE. [Suspect]
     Active Substance: PREDNISONE
     Indication: ACUTE LYMPHOCYTIC LEUKAEMIA
     Dosage: UNK
     Route: 065
  4. VINCRISTINE SULFATE. [Suspect]
     Active Substance: VINCRISTINE SULFATE
     Indication: ACUTE LYMPHOCYTIC LEUKAEMIA
     Dosage: UNK
     Route: 042
  5. DOXORUBICIN [Suspect]
     Active Substance: DOXORUBICIN
     Indication: ACUTE LYMPHOCYTIC LEUKAEMIA
     Dosage: UNK
     Route: 042

REACTIONS (17)
  - Hepatosplenomegaly [Fatal]
  - Pulmonary alveolar haemorrhage [Fatal]
  - Aspartate aminotransferase increased [Fatal]
  - Body temperature increased [Fatal]
  - Hypoxia [Fatal]
  - Multiple organ dysfunction syndrome [Fatal]
  - Atelectasis [Fatal]
  - Renal abscess [Fatal]
  - Neutropenia [Fatal]
  - Liver abscess [Fatal]
  - Trichosporon infection [Fatal]
  - Lung infiltration [Fatal]
  - Alanine aminotransferase increased [Fatal]
  - Respiratory distress [Fatal]
  - Abscess fungal [Fatal]
  - Mucosal inflammation [Fatal]
  - Streptococcal infection [Fatal]
